FAERS Safety Report 12560930 (Version 1)
Quarter: 2016Q3

REPORT INFORMATION
  Report Type: Spontaneous
  Country: JP (occurrence: JP)
  Receive Date: 20160715
  Receipt Date: 20160715
  Transmission Date: 20161109
  Serious: Yes (Death, Hospitalization, Other)
  Sender: FDA-Public Use
  Company Number: JP-ELI_LILLY_AND_COMPANY-JP201606010077

PATIENT
  Age: 70 Year
  Sex: Female
  Weight: 39.9 kg

DRUGS (3)
  1. CYRAMZA [Suspect]
     Active Substance: RAMUCIRUMAB
     Indication: GASTRIC CANCER RECURRENT
     Dosage: 8 MG/KG, OTHER
     Route: 042
     Dates: start: 20151110, end: 20160419
  2. PACLITAXEL. [Concomitant]
     Active Substance: PACLITAXEL
     Indication: GASTRIC CANCER RECURRENT
     Dosage: 80 MG/M2, OTHER
     Route: 042
     Dates: start: 20151110, end: 20160419
  3. IRINOTECAN [Concomitant]
     Active Substance: IRINOTECAN
     Indication: GASTRIC CANCER RECURRENT
     Dosage: 70% DOSE AS USUAL
     Route: 042
     Dates: start: 20160524, end: 20160531

REACTIONS (3)
  - Malignant neoplasm progression [Unknown]
  - Cerebellar haemorrhage [Fatal]
  - Nausea [Unknown]

NARRATIVE: CASE EVENT DATE: 20160510
